FAERS Safety Report 15256442 (Version 2)
Quarter: 2018Q3

REPORT INFORMATION
  Report Type: Spontaneous
  Country: US (occurrence: US)
  Receive Date: 20180808
  Receipt Date: 20180903
  Transmission Date: 20181010
  Serious: No
  Sender: FDA-Public Use
  Company Number: US-SA-2018SA214693

PATIENT
  Age: 62 Year
  Sex: Female

DRUGS (1)
  1. DUPIXENT [Suspect]
     Active Substance: DUPILUMAB
     Indication: DERMATITIS ATOPIC
     Dosage: UNK UNK, QOW
     Dates: start: 201503

REACTIONS (5)
  - Gait disturbance [Unknown]
  - Fall [Unknown]
  - Back pain [Unknown]
  - Eczema eyelids [Unknown]
  - Malaise [Unknown]
